FAERS Safety Report 11233097 (Version 1)
Quarter: 2015Q3

REPORT INFORMATION
  Report Type: Spontaneous
  Country: GB (occurrence: GB)
  Receive Date: 20150701
  Receipt Date: 20150701
  Transmission Date: 20151125
  Serious: Yes (Other)
  Sender: FDA-Public Use
  Company Number: GB-GLAXOSMITHKLINE-GB2015GSK034801

PATIENT
  Sex: Male

DRUGS (3)
  1. CROMOGLICATE SODIUM [Suspect]
     Active Substance: CROMOLYN SODIUM
     Indication: MASTOCYTOSIS
     Dosage: UNK
     Dates: start: 2010, end: 201112
  2. RANITIDINE [Suspect]
     Active Substance: RANITIDINE\RANITIDINE HYDROCHLORIDE
     Indication: MASTOCYTOSIS
     Dosage: UNK
     Dates: start: 2010, end: 201112
  3. HYDRALAZINE [Suspect]
     Active Substance: HYDRALAZINE HYDROCHLORIDE
     Indication: MASTOCYTOSIS
     Dosage: UNK
     Dates: start: 2010, end: 201112

REACTIONS (4)
  - Diarrhoea [Recovering/Resolving]
  - Rash [Unknown]
  - Schnitzler^s syndrome [Recovering/Resolving]
  - Drug intolerance [Unknown]
